FAERS Safety Report 13468490 (Version 1)
Quarter: 2017Q2

REPORT INFORMATION
  Report Type: Spontaneous
  Country: GB (occurrence: GB)
  Receive Date: 20170421
  Receipt Date: 20170421
  Transmission Date: 20170830
  Serious: Yes (Other)
  Sender: FDA-Public Use
  Company Number: GB-009507513-1704GBR010018

PATIENT
  Age: 74 Year
  Sex: Male

DRUGS (9)
  1. DIGOXIN. [Concomitant]
     Active Substance: DIGOXIN
  2. RANITIDINE. [Concomitant]
     Active Substance: RANITIDINE
  3. TAMSULOSIN HYDROCHLORIDE. [Concomitant]
     Active Substance: TAMSULOSIN HYDROCHLORIDE
  4. LORAZEPAM. [Concomitant]
     Active Substance: LORAZEPAM
  5. MEMANTINE. [Concomitant]
     Active Substance: MEMANTINE
  6. ATORVASTATIN [Concomitant]
     Active Substance: ATORVASTATIN
  7. SOTALOL. [Concomitant]
     Active Substance: SOTALOL
  8. JANUVIA [Suspect]
     Active Substance: SITAGLIPTIN PHOSPHATE
     Indication: DIABETES MELLITUS
     Dosage: 100 MG, DAILY
     Route: 048
     Dates: start: 201605
  9. METFORMIN [Concomitant]
     Active Substance: METFORMIN HYDROCHLORIDE

REACTIONS (2)
  - Dysphagia [Unknown]
  - Dementia [Unknown]
